FAERS Safety Report 5023805-5 (Version None)
Quarter: 2006Q2

REPORT INFORMATION
  Report Type: 
  Country: None (occurrence: None)
  Receive Date: 20060606
  Receipt Date: 20060522
  Transmission Date: 20061013
  Serious: Yes (Hospitalization)
  Sender: FDA-Public Use
  Company Number: HQWYE445922MAY06

PATIENT
  Age: 54 Year
  Sex: Female

DRUGS (13)
  1. INIPOMP          (PANTOPRAZOLE) [Suspect]
     Dosage: 40 MG 1X PER 1 DAY ORAL
     Route: 048
     Dates: start: 20060305, end: 20060317
  2. CIPROFLOXACIN HCL [Suspect]
     Dosage: 800 MG INTRAVENOUS
     Route: 042
     Dates: start: 20060220, end: 20060313
  3. CEFTAZIDIME PENTAHYDRATE [Suspect]
     Dosage: 3 G 1X PER 1 DAY INTRAVENOUS
     Route: 042
     Dates: start: 20060220, end: 20060313
  4. VANCOMYCIN [Suspect]
     Dosage: 3.5 G 1X PER 1 DAY INTRAVENOUS
     Route: 042
     Dates: start: 20060210, end: 20060313
  5. CHLORPROMAZINE HCL [Concomitant]
  6. VFEND [Concomitant]
  7. ZOVIRAX [Concomitant]
  8. TRANXENE [Concomitant]
  9. PLITICAN              (ALIZAPRIDE HYDROCHLORIDE) [Concomitant]
  10. ATARAX [Concomitant]
  11. TIORFAN         (ACETORPHAN) [Concomitant]
  12. MYCOSTATIN [Concomitant]
  13. PRIMPERAN TAB [Concomitant]

REACTIONS (10)
  - ALANINE AMINOTRANSFERASE INCREASED [None]
  - ASPARTATE AMINOTRANSFERASE INCREASED [None]
  - BACTERIA STOOL IDENTIFIED [None]
  - CLOSTRIDIAL INFECTION [None]
  - DERMATITIS EXFOLIATIVE [None]
  - DRUG RASH WITH EOSINOPHILIA AND SYSTEMIC SYMPTOMS [None]
  - GAMMA-GLUTAMYLTRANSFERASE INCREASED [None]
  - HYPERSENSITIVITY [None]
  - RECTAL ABSCESS [None]
  - SKIN EXFOLIATION [None]
